FAERS Safety Report 9065946 (Version 1)
Quarter: 2013Q1

REPORT INFORMATION
  Report Type: Spontaneous
  Country: CA (occurrence: CA)
  Receive Date: 20130214
  Receipt Date: 20130214
  Transmission Date: 20140127
  Serious: Yes (Other)
  Sender: FDA-Public Use
  Company Number: CA-NAPPMUNDI-CAN-2012-0003224

PATIENT
  Age: 47 Year
  Sex: Male
  Weight: 81.63 kg

DRUGS (6)
  1. BUTRANS [Suspect]
     Indication: PAIN
     Dosage: 1 UNIT, WEEKLY
     Route: 062
     Dates: start: 20120731
  2. BUTRANS [Suspect]
     Dosage: 1 UNIT, WEEKLY
     Route: 062
     Dates: start: 20120628, end: 20120731
  3. CYCLOBENZAPRINE [Concomitant]
     Indication: MUSCLE RELAXANT THERAPY
     Dosage: 10 MG, HS
     Route: 065
  4. TYLENOL W/CODEINE NO. 3 [Concomitant]
     Indication: BREAKTHROUGH PAIN
     Dosage: 1-2 TABLETS Q4H PRN
     Route: 065
  5. CYMBALTA [Concomitant]
     Indication: PRODUCT USED FOR UNKNOWN INDICATION
     Dosage: 60 MG, DAILY
     Route: 065
  6. OMEPRAZOLE [Concomitant]
     Indication: PRODUCT USED FOR UNKNOWN INDICATION
     Dosage: 20 MG, DAILY
     Route: 065

REACTIONS (6)
  - Device leakage [Recovered/Resolved]
  - Motor dysfunction [Recovered/Resolved]
  - Visual impairment [Recovered/Resolved]
  - Feeling abnormal [Recovered/Resolved]
  - Abdominal discomfort [Recovered/Resolved]
  - Euphoric mood [Recovered/Resolved]
